FAERS Safety Report 5682688-0 (Version None)
Quarter: 2008Q1

REPORT INFORMATION
  Report Type: 
  Country: None (occurrence: None)
  Receive Date: 20080327
  Receipt Date: 20080229
  Transmission Date: 20080703
  Serious: No
  Sender: FDA-Public Use
  Company Number: US-BRISTOL-MYERS SQUIBB COMPANY-14097729

PATIENT
  Sex: Female

DRUGS (1)
  1. ORENCIA [Suspect]
     Route: 042
     Dates: start: 20080131

REACTIONS (5)
  - EYE SWELLING [None]
  - LIGAMENT LAXITY [None]
  - NAUSEA [None]
  - SWELLING FACE [None]
  - SWOLLEN TONGUE [None]
